FAERS Safety Report 9223692 (Version 3)
Quarter: 2013Q2

REPORT INFORMATION
  Report Type: Spontaneous
  Country: US (occurrence: US)
  Receive Date: 20130410
  Receipt Date: 20130506
  Transmission Date: 20140414
  Serious: Yes (Disabling)
  Sender: FDA-Public Use
  Company Number: US-009507513-1304USA002807

PATIENT
  Sex: Female

DRUGS (10)
  1. MK-0000 [Suspect]
     Route: 048
  2. PROTONIX [Concomitant]
     Dosage: 40 MG, QD
  3. HYDROCODONE [Concomitant]
  4. IBUPROFEN [Concomitant]
  5. HYDROXYZINE [Concomitant]
  6. GLYBURIDE [Concomitant]
  7. METFORMIN [Concomitant]
  8. ASPIRIN [Concomitant]
  9. CITALOPRAM [Concomitant]
  10. SIMVASTATIN [Concomitant]

REACTIONS (3)
  - Activities of daily living impaired [Unknown]
  - Intervertebral disc disorder [Unknown]
  - Drug hypersensitivity [Unknown]
